FAERS Safety Report 14552920 (Version 1)
Quarter: 2018Q1

REPORT INFORMATION
  Report Type: Spontaneous
  Country: US (occurrence: US)
  Receive Date: 20180220
  Receipt Date: 20180220
  Transmission Date: 20180509
  Serious: Yes (Other)
  Sender: FDA-Public Use
  Company Number: US-PURDUE-USA-2018-0142743

PATIENT
  Age: 71 Year
  Sex: Female

DRUGS (1)
  1. COLACE [Suspect]
     Active Substance: DOCUSATE SODIUM
     Indication: CONSTIPATION
     Dosage: 3 TABLET, UNK
     Route: 048
     Dates: start: 20180123, end: 20180124

REACTIONS (8)
  - Feeling abnormal [Recovered/Resolved]
  - Anal incontinence [Recovered/Resolved]
  - Feeding disorder [Recovered/Resolved]
  - Weight decreased [Unknown]
  - Anorectal disorder [Recovered/Resolved]
  - Abdominal distension [Recovered/Resolved]
  - Urinary incontinence [Recovered/Resolved]
  - Decreased appetite [Recovered/Resolved]

NARRATIVE: CASE EVENT DATE: 20180124
